FAERS Safety Report 5134273-7 (Version None)
Quarter: 2006Q4

REPORT INFORMATION
  Report Type: 
  Country: None (occurrence: None)
  Receive Date: 20061019
  Receipt Date: 20061001
  Transmission Date: 20070319
  Serious: Yes (Death, Hospitalization)
  Sender: FDA-Public Use
  Company Number: A-CH2006-13207

PATIENT
  Age: 76 Year
  Sex: Male

DRUGS (2)
  1. TRACLEER [Suspect]
     Indication: PULMONARY FIBROSIS
     Dosage: SEE IMAGE
     Route: 048
     Dates: end: 20060901
  2. TRACLEER [Suspect]
     Indication: PULMONARY FIBROSIS
     Dosage: SEE IMAGE
     Route: 048
     Dates: start: 20060401

REACTIONS (9)
  - BLOOD PRESSURE SYSTOLIC DECREASED [None]
  - CARDIAC ARREST [None]
  - CARDIOVASCULAR DISORDER [None]
  - CHRONIC RESPIRATORY FAILURE [None]
  - DISEASE PROGRESSION [None]
  - OFF LABEL USE [None]
  - PULMONARY FIBROSIS [None]
  - RESPIRATORY DISTRESS [None]
  - RESPIRATORY FAILURE [None]
